FAERS Safety Report 6804653-X (Version None)
Quarter: 2010Q2

REPORT INFORMATION
  Report Type: 
  Country: None (occurrence: None)
  Receive Date: 20100628
  Receipt Date: 20070730
  Transmission Date: 20101027
  Serious: No
  Sender: FDA-Public Use
  Company Number: US-PFIZER INC-2007031033

PATIENT
  Sex: Female
  Weight: 59.09 kg

DRUGS (4)
  1. COVERA-HS [Suspect]
     Indication: TACHYCARDIA
     Dates: start: 20060101
  2. COVERA-HS [Suspect]
     Indication: MYOCARDIAL INFARCTION
  3. CRESTOR [Concomitant]
  4. PLAVIX [Concomitant]

REACTIONS (3)
  - CONSTIPATION [None]
  - DIAPHRAGMATIC HERNIA [None]
  - GASTRIC DISORDER [None]
